FAERS Safety Report 8421034-6 (Version None)
Quarter: 2012Q2

REPORT INFORMATION
  Report Type: 
  Country: None (occurrence: None)
  Receive Date: 20120323
  Receipt Date: 20111207
  Transmission Date: 20120825
  Serious: Yes (Other)
  Sender: FDA-Public Use
  Company Number: 163-21880-11121182

PATIENT
  Age: 83 Year
  Sex: Female

DRUGS (8)
  1. AVANDARYL (AVANDARYL) [Concomitant]
  2. COLCRYS [Concomitant]
  3. OXYCODONE HCL [Concomitant]
  4. REVLIMID [Suspect]
     Indication: MULTIPLE MYELOMA
     Dosage: 25 MG, 1 IN 1 D, PO ; 25 MG, DAILY X 21 DAYS, PO
     Route: 048
     Dates: start: 20100101
  5. REVLIMID [Suspect]
     Indication: MULTIPLE MYELOMA
     Dosage: 25 MG, 1 IN 1 D, PO ; 25 MG, DAILY X 21 DAYS, PO
     Route: 048
     Dates: start: 20100601
  6. SIMVASTATIN [Concomitant]
  7. ZOLPIDEM TARTRATE [Concomitant]
  8. LATANOPROST [Concomitant]

REACTIONS (1)
  - RASH [None]
